FAERS Safety Report 21074220 (Version 3)
Quarter: 2022Q3

REPORT INFORMATION
  Report Type: Spontaneous
  Country: US (occurrence: US)
  Receive Date: 20220713
  Receipt Date: 20220826
  Transmission Date: 20221027
  Serious: Yes (Hospitalization, Other)
  Sender: FDA-Public Use
  Company Number: US-UNITED THERAPEUTICS-UNT-2022-013538

PATIENT
  Age: 69 Year
  Sex: Male

DRUGS (3)
  1. REMODULIN [Suspect]
     Active Substance: TREPROSTINIL
     Indication: Pulmonary arterial hypertension
     Dosage: UNK, CONTINUING
     Route: 058
     Dates: start: 20220523
  2. REMODULIN [Suspect]
     Active Substance: TREPROSTINIL
     Dosage: 0.0329 ?G/KG, CONTINUING
     Route: 058
     Dates: start: 2022, end: 2022
  3. REMODULIN [Suspect]
     Active Substance: TREPROSTINIL
     Dosage: 0.0391 ?G/KG, CONTINUING
     Route: 058
     Dates: start: 2022

REACTIONS (2)
  - Cellulitis [Recovered/Resolved]
  - Deep vein thrombosis [Recovering/Resolving]

NARRATIVE: CASE EVENT DATE: 20220601
